FAERS Safety Report 6983489-3 (Version None)
Quarter: 2010Q3

REPORT INFORMATION
  Report Type: 
  Country: None (occurrence: None)
  Receive Date: 20100914
  Receipt Date: 20080623
  Transmission Date: 20110219
  Serious: No
  Sender: FDA-Public Use
  Company Number: US-WYE-H04639908

PATIENT
  Sex: Female

DRUGS (1)
  1. ADVIL LIQUI-GELS [Suspect]

REACTIONS (3)
  - EYE SWELLING [None]
  - NASAL OEDEMA [None]
  - PHARYNGEAL OEDEMA [None]
